FAERS Safety Report 5253367-9 (Version None)
Quarter: 2007Q1

REPORT INFORMATION
  Report Type: 
  Country: None (occurrence: None)
  Receive Date: 20070301
  Receipt Date: 20070223
  Transmission Date: 20070707
  Serious: Yes (Other)
  Sender: FDA-Public Use
  Company Number: HQWYE022116FEB07

PATIENT
  Sex: Male

DRUGS (6)
  1. AMIODAR [Suspect]
     Indication: ATRIAL FIBRILLATION
     Route: 042
     Dates: start: 20060828, end: 20060830
  2. AMIODAR [Interacting]
     Indication: CARDIOVERSION
  3. NEXIUM [Concomitant]
     Dosage: 20 MG (FREQUENCY UNSPECIFIED)
     Route: 048
  4. NEBIVOLOL HCL [Concomitant]
     Indication: HYPERTENSION
  5. CLEXANE [Interacting]
     Indication: ATRIAL FIBRILLATION
     Route: 058
     Dates: start: 20060828, end: 20060830
  6. CLEXANE [Interacting]
     Indication: THROMBOSIS PROPHYLAXIS
     Dosage: 8000 IU (FREQUENCY UNSPECIFIED)
     Route: 058
     Dates: start: 20060901

REACTIONS (3)
  - ACTIVATED PARTIAL THROMBOPLASTIN TIME PROLONGED [None]
  - DRUG INTERACTION [None]
  - INTERNATIONAL NORMALISED RATIO INCREASED [None]
